FAERS Safety Report 7901554-0 (Version None)
Quarter: 2011Q4

REPORT INFORMATION
  Report Type: 
  Country: None (occurrence: None)
  Receive Date: 20111108
  Receipt Date: 20111011
  Transmission Date: 20120403
  Serious: Yes (Hospitalization)
  Sender: FDA-Public Use
  Company Number: CA-JNJFOC-20111101609

PATIENT
  Sex: Female
  Weight: 52 kg

DRUGS (1)
  1. REMICADE [Suspect]
     Indication: CROHN'S DISEASE
     Dates: start: 20050301, end: 20110926

REACTIONS (2)
  - SMALL INTESTINE CARCINOMA METASTATIC [None]
  - DRUG INEFFECTIVE [None]
